FAERS Safety Report 15284872 (Version 1)
Quarter: 2018Q3

REPORT INFORMATION
  Report Type: Spontaneous
  Country: US (occurrence: US)
  Receive Date: 20180802
  Receipt Date: 20180802
  Transmission Date: 20181010
  Serious: No
  Sender: FDA-Public Use
  Company Number: None

PATIENT
  Age: 65 Year
  Sex: Male

DRUGS (1)
  1. ENBREL [Suspect]
     Active Substance: ETANERCEPT
     Dates: start: 20180501, end: 201808

REACTIONS (4)
  - Headache [None]
  - Arthropod bite [None]
  - Respiratory disorder [None]
  - Viral infection [None]

NARRATIVE: CASE EVENT DATE: 20180703
